FAERS Safety Report 4700548-6 (Version None)
Quarter: 2005Q2

REPORT INFORMATION
  Report Type: 
  Country: None (occurrence: None)
  Receive Date: 20050627
  Receipt Date: 20050627
  Transmission Date: 20051028
  Serious: Yes (Life-Threatening, Hospitalization, Disabling)
  Sender: FDA-Public Use
  Company Number: None

PATIENT
  Sex: Male
  Weight: 73.4827 kg

DRUGS (2)
  1. PAXIL [Suspect]
     Indication: ANXIETY
     Dosage: 20 MG   ONCE DAILY   ORAL
     Route: 048
     Dates: start: 20000610, end: 20040606
  2. PAXIL [Suspect]
     Indication: PANIC ATTACK
     Dosage: 20 MG   ONCE DAILY   ORAL
     Route: 048
     Dates: start: 20000610, end: 20040606

REACTIONS (7)
  - ABNORMAL BEHAVIOUR [None]
  - AGGRESSION [None]
  - ALCOHOL USE [None]
  - CRYING [None]
  - DEPRESSION [None]
  - FEELING ABNORMAL [None]
  - MEMORY IMPAIRMENT [None]
